FAERS Safety Report 6174567-X (Version None)
Quarter: 2009Q2

REPORT INFORMATION
  Report Type: 
  Country: None (occurrence: None)
  Receive Date: 20090430
  Receipt Date: 20080730
  Transmission Date: 20091009
  Serious: No
  Sender: FDA-Public Use
  Company Number: US-ASTRAZENECA-2008UW15581

PATIENT
  Age: 73 Year
  Sex: Female

DRUGS (7)
  1. NEXIUM [Suspect]
     Route: 048
  2. NEXIUM [Suspect]
     Route: 048
  3. VERAPAMIL [Concomitant]
  4. COLACE [Concomitant]
  5. SPIROLACTONE [Concomitant]
  6. CENTRUM SILVER [Concomitant]
  7. SIMVASTATIN [Concomitant]

REACTIONS (2)
  - BODY HEIGHT DECREASED [None]
  - BONE DENSITY DECREASED [None]
